FAERS Safety Report 4400153-5 (Version None)
Quarter: 2004Q3

REPORT INFORMATION
  Report Type: 
  Country: None (occurrence: None)
  Receive Date: 20040716
  Receipt Date: 20040628
  Transmission Date: 20050211
  Serious: Yes (Other)
  Sender: FDA-Public Use
  Company Number: US_000949741

PATIENT
  Age: 79 Year
  Sex: Female
  Weight: 70 kg

DRUGS (3)
  1. HUMULIN N [Suspect]
     Indication: DIABETES MELLITUS
     Dosage: 26 U/1 DAY
     Dates: start: 20000301
  2. DIOVAN [Concomitant]
  3. WATER PILL [Concomitant]

REACTIONS (6)
  - CARDIAC FAILURE [None]
  - DIABETIC COMPLICATION [None]
  - DRUG INEFFECTIVE [None]
  - HYPERTENSION [None]
  - RENAL FAILURE [None]
  - WEIGHT INCREASED [None]
